FAERS Safety Report 5045224-8 (Version None)
Quarter: 2006Q3

REPORT INFORMATION
  Report Type: 
  Country: None (occurrence: None)
  Receive Date: 20060707
  Receipt Date: 20060628
  Transmission Date: 20061208
  Serious: Yes (Hospitalization)
  Sender: FDA-Public Use
  Company Number: SE-GLAXOSMITHKLINE-B0429701A

PATIENT
  Age: 85 Year
  Sex: Female

DRUGS (6)
  1. LAMICTAL [Suspect]
     Dosage: 75MG PER DAY
     Route: 048
  2. ERGENYL [Suspect]
     Dosage: 450MG PER DAY
     Route: 048
  3. SALURES-K [Suspect]
     Route: 048
     Dates: end: 20060603
  4. SPIRONOLAKTON [Concomitant]
  5. ATENOLOL [Concomitant]
  6. TROMBYL [Concomitant]

REACTIONS (3)
  - HYPONATRAEMIA [None]
  - NAUSEA [None]
  - VOMITING [None]
